FAERS Safety Report 7562694-1 (Version None)
Quarter: 2011Q2

REPORT INFORMATION
  Report Type: 
  Country: None (occurrence: None)
  Receive Date: 20110621
  Receipt Date: 20110621
  Transmission Date: 20111010
  Serious: Yes (Other)
  Sender: FDA-Public Use
  Company Number: None

PATIENT
  Sex: Female
  Weight: 54.4316 kg

DRUGS (1)
  1. COMPOUND W FREEZE OFF [Suspect]
     Indication: SKIN PAPILLOMA
     Dosage: SMALL AMOUT ONCE TOP
     Route: 061
     Dates: start: 20110529, end: 20110529

REACTIONS (2)
  - APPLICATION SITE VESICLES [None]
  - APPLICATION SITE BURN [None]
